FAERS Safety Report 20148775 (Version 1)
Quarter: 2021Q4

REPORT INFORMATION
  Report Type: Report from Study
  Country: CA (occurrence: CA)
  Receive Date: 20211204
  Receipt Date: 20211204
  Transmission Date: 20220303
  Serious: Yes (Other)
  Sender: FDA-Public Use
  Company Number: CA-GILEAD-2020-0465066

PATIENT
  Age: 57 Year
  Sex: Female

DRUGS (1)
  1. AZTREONAM LYSINE [Suspect]
     Active Substance: AZTREONAM LYSINE
     Indication: Cystic fibrosis
     Dosage: 75 MG, TID, 2 WEEKS ON AND 2 WEEKS OFF
     Route: 055
     Dates: start: 202003

REACTIONS (6)
  - Bronchiectasis [Unknown]
  - Pseudomonas infection [Unknown]
  - Cystic fibrosis [Unknown]
  - Intentional dose omission [Unknown]
  - Liquid product physical issue [Not Recovered/Not Resolved]
  - Off label use [Not Recovered/Not Resolved]

NARRATIVE: CASE EVENT DATE: 20200801
